FAERS Safety Report 9766721 (Version 2)
Quarter: 2014Q1

REPORT INFORMATION
  Report Type: Spontaneous
  Country: US (occurrence: US)
  Receive Date: 20131217
  Receipt Date: 20140124
  Transmission Date: 20141002
  Serious: No
  Sender: FDA-Public Use
  Company Number: US-BIOGENIDEC-2013BI118971

PATIENT
  Age: 62 Year
  Sex: Female

DRUGS (13)
  1. TECFIDERA [Suspect]
     Indication: SECONDARY PROGRESSIVE MULTIPLE SCLEROSIS
     Route: 048
     Dates: start: 20131014
  2. TECFIDERA [Suspect]
     Indication: SECONDARY PROGRESSIVE MULTIPLE SCLEROSIS
     Route: 048
     Dates: start: 20131108, end: 20131206
  3. AMPYRA [Concomitant]
  4. LYRICA [Concomitant]
  5. AMITIZA [Concomitant]
  6. DESMOPRESSIN [Concomitant]
  7. IMIPRAMINE [Concomitant]
  8. LACTOSE [Concomitant]
  9. CRESTOR [Concomitant]
  10. IMIPRAM [Concomitant]
  11. BACLOFEN [Concomitant]
  12. FISH OIL [Concomitant]
  13. PREDNISONE [Concomitant]

REACTIONS (3)
  - Drug ineffective [Unknown]
  - Fatigue [Unknown]
  - Muscular weakness [Unknown]
